FAERS Safety Report 4471486-1 (Version None)
Quarter: 2004Q4

REPORT INFORMATION
  Report Type: 
  Country: None (occurrence: None)
  Receive Date: 20041008
  Receipt Date: 20040928
  Transmission Date: 20050328
  Serious: Yes (Hospitalization)
  Sender: FDA-Public Use
  Company Number: 2004-UK-00966NV

PATIENT
  Age: 44 Year
  Sex: Male
  Weight: 62 kg

DRUGS (9)
  1. ORAMORPH (0015/0122) (MORPHINE SULFATE [Suspect]
     Indication: PAIN
     Dosage: 30-50 MG PRN (AS REQUIRED), PO
     Route: 048
     Dates: start: 20040729
  2. ABJ879 [Suspect]
     Indication: OESOPHAGEAL CARCINOMA
     Dosage: 8.84 MG/M2, IV
     Route: 042
     Dates: start: 20040831
  3. FENTANYL [Concomitant]
  4. IBUPROFEN [Concomitant]
  5. ZOPLICONE (ZOPLICONE) [Concomitant]
  6. LANSOPRAZOLE [Concomitant]
  7. EFFEXOR XR [Concomitant]
  8. DEXAMETHASONE [Concomitant]
  9. LAXOBERAL (SODIUM PICOSULFATE) [Concomitant]

REACTIONS (8)
  - ABDOMINAL PAIN UPPER [None]
  - BACK PAIN [None]
  - CONCOMITANT DISEASE PROGRESSION [None]
  - CONFUSIONAL STATE [None]
  - HALLUCINATION [None]
  - MOBILITY DECREASED [None]
  - ORAL CANDIDIASIS [None]
  - PHARYNGOLARYNGEAL PAIN [None]
